FAERS Safety Report 5822810-6 (Version None)
Quarter: 2008Q3

REPORT INFORMATION
  Report Type: 
  Country: None (occurrence: None)
  Receive Date: 20080725
  Receipt Date: 20080724
  Transmission Date: 20090109
  Serious: Yes (Hospitalization, Other)
  Sender: FDA-Public Use
  Company Number: DK-BRISTOL-MYERS SQUIBB COMPANY-14217053

PATIENT
  Age: 26 Year
  Sex: Male
  Weight: 58 kg

DRUGS (14)
  1. TAXOL [Suspect]
     Indication: GERM CELL CANCER
     Dosage: ALSO GVN ON 16MAY08,21MAY08,11JUN08(236MG,CD 551MG) TTL DS GVN=315 MG,551 MG.
     Route: 042
     Dates: start: 20080515, end: 20080515
  2. BLEOMYCIN SULFATE [Suspect]
     Indication: GERM CELL CANCER
     Dosage: STD ON 15MAY08,GVN ON 19MAY08,26JUN08 TTL DS GVN:30000 IU,180000 IU.
     Route: 042
     Dates: start: 20080521, end: 20080521
  3. CISPLATIN [Suspect]
     Indication: GERM CELL CANCER
     Dosage: STARTED ON 15MAY08,GIVEN ON 17MAY08,15JUN08 CUMULATIVE DOSE GIVEN: 360 MG,ACT DS 180MG
     Route: 042
     Dates: start: 20080521, end: 20080521
  4. ETOPOSIDE [Suspect]
     Indication: GERM CELL CANCER
     Dosage: STARTED ON 15MAY08,GIVEN ON 17MAY08,15JUN08(135 MG) CUMULATIVE DOSE GIVEN : 1575 MG, ACT DOSE 180MG
     Route: 042
     Dates: start: 20080521, end: 20080521
  5. FRAGMIN [Suspect]
     Dates: start: 20080529
  6. NEUPOGEN [Suspect]
     Indication: GERM CELL CANCER
     Dosage: GIVEN ON (25MAY08) +  29MAY08(0.3 MG) CUMULATIVE DOSE GIVEN :(1200UG) 6 MG + 2400 UG
     Dates: start: 20080522, end: 20080522
  7. SOLU-MEDROL [Concomitant]
     Dates: start: 20080515, end: 20080515
  8. ZANTAC [Concomitant]
     Dates: start: 20080515, end: 20080515
  9. TAVEGYL [Concomitant]
     Dates: start: 20080515, end: 20080515
  10. ROCEPHIN [Concomitant]
     Dates: start: 20080526, end: 20080531
  11. METRONIDAZOLE HCL [Concomitant]
     Dates: start: 20080526, end: 20080528
  12. PENICILLIN [Concomitant]
     Route: 042
     Dates: start: 20080527, end: 20080602
  13. OXYNORM [Concomitant]
     Dates: start: 20080505
  14. ACETAMINOPHEN [Concomitant]

REACTIONS (6)
  - CYSTITIS [None]
  - DEEP VEIN THROMBOSIS [None]
  - DRUG HYPERSENSITIVITY [None]
  - NEUTROPENIA [None]
  - TONSILLITIS [None]
  - URINARY TRACT INFECTION [None]
